FAERS Safety Report 9639415 (Version 2)
Quarter: 2014Q1

REPORT INFORMATION
  Report Type: Report from Study
  Country: ZA (occurrence: ZA)
  Receive Date: 20131022
  Receipt Date: 20140124
  Transmission Date: 20141002
  Serious: Yes (Death, Hospitalization)
  Sender: FDA-Public Use
  Company Number: ZA-ROCHE-1292550

PATIENT
  Age: 66 Year
  Sex: Male

DRUGS (2)
  1. MIRCERA [Suspect]
     Indication: NEPHROGENIC ANAEMIA
     Dosage: LAST DOSE RECEIVED IN /NOV/2013
     Route: 058
     Dates: start: 201211
  2. VENOFER [Concomitant]
     Route: 065

REACTIONS (2)
  - Infection [Unknown]
  - Death [Fatal]
